FAERS Safety Report 7405573-2 (Version None)
Quarter: 2011Q1

REPORT INFORMATION
  Report Type: 
  Country: None (occurrence: None)
  Receive Date: 20110330
  Receipt Date: 20110321
  Transmission Date: 20110831
  Serious: Yes (Death, Hospitalization, Other)
  Sender: FDA-Public Use
  Company Number: 2011AC000002

PATIENT
  Age: 84 Year
  Sex: Male

DRUGS (39)
  1. ASPIRIN [Concomitant]
  2. LUPRON [Concomitant]
  3. MIRALAX [Concomitant]
  4. ALPRAZOLAM [Concomitant]
  5. IRON [Concomitant]
  6. CARVEDILOL [Concomitant]
  7. VITAMIN E [Concomitant]
  8. DIGOXIN [Suspect]
     Dosage: 0.125 MG; ;PO
     Route: 048
     Dates: start: 20080101, end: 20100226
  9. DIGOXIN [Suspect]
     Dosage: 0.125 MG; QD; PO
     Route: 048
     Dates: start: 19690101
  10. LASIX [Concomitant]
  11. POTASSIUM [Concomitant]
  12. ZOLADEX [Concomitant]
  13. CASODEX [Concomitant]
  14. VITAMINS [Concomitant]
  15. ZYPREXA [Concomitant]
  16. HEMRIL-30 [Concomitant]
  17. INDOMETHACIN [Concomitant]
  18. TORADOL [Concomitant]
  19. METOPROLOL [Concomitant]
  20. LIPITOR [Concomitant]
  21. BILBERRY SUPPLEMENT [Concomitant]
  22. FOSAMAX [Concomitant]
  23. CEPHALEXIN [Concomitant]
  24. RISPERIDONE [Concomitant]
  25. ZESTRIL [Concomitant]
  26. ARICEPT [Concomitant]
  27. GOLYTELY [Concomitant]
  28. ZOMETA [Concomitant]
  29. LEXAPRO [Concomitant]
  30. NAMENDA [Concomitant]
  31. FLUZONE [Concomitant]
  32. KRISTALOSE [Concomitant]
  33. DIGOXIN [Suspect]
     Indication: TACHYCARDIA
     Dosage: 0.125 MG; QD; PO
     Route: 048
     Dates: start: 20010101
  34. AMIODARONE [Concomitant]
  35. LUPRON [Concomitant]
  36. MAGNESIUM [Concomitant]
  37. SPIRONOLACTONE [Concomitant]
  38. OXYCODONE HCL [Concomitant]
  39. CALCIUM VITAMIN D [Concomitant]

REACTIONS (23)
  - CONFUSIONAL STATE [None]
  - INCORRECT DOSE ADMINISTERED [None]
  - CARDIAC FLUTTER [None]
  - BRADYCARDIA [None]
  - PROSTATE CANCER METASTATIC [None]
  - ANHEDONIA [None]
  - HYPERTENSION [None]
  - DEMENTIA [None]
  - AGITATION [None]
  - PAIN [None]
  - RENAL FAILURE ACUTE [None]
  - DEPRESSION [None]
  - TREATMENT NONCOMPLIANCE [None]
  - HYPOTHYROIDISM [None]
  - MEMORY IMPAIRMENT [None]
  - ANAEMIA [None]
  - CARDIOMEGALY [None]
  - NAUSEA [None]
  - WEIGHT DECREASED [None]
  - ATRIOVENTRICULAR BLOCK FIRST DEGREE [None]
  - CARDIAC FAILURE [None]
  - DEHYDRATION [None]
  - CARDIO-RESPIRATORY ARREST [None]
